FAERS Safety Report 9391461 (Version 4)
Quarter: 2014Q1

REPORT INFORMATION
  Report Type: Report from Study
  Country: US (occurrence: US)
  Receive Date: 20130709
  Receipt Date: 20140102
  Transmission Date: 20141002
  Serious: Yes (Hospitalization)
  Sender: FDA-Public Use
  Company Number: US-AMGEN-USACT2013047486

PATIENT
  Age: 64 Year
  Sex: Female

DRUGS (17)
  1. ETANERCEPT [Suspect]
     Indication: RHEUMATOID ARTHRITIS
     Dosage: 50 MG, QWK
     Route: 058
     Dates: start: 20120613
  2. AMOXICILLIN [Concomitant]
     Indication: SINUSITIS
     Dosage: 10 MG, BID
     Route: 048
     Dates: start: 20120627, end: 20120706
  3. FOLIC ACID [Concomitant]
     Dosage: 1 MG, QD
     Route: 048
     Dates: start: 20080721
  4. ALBUTEROL [Concomitant]
     Indication: ASTHMA
     Dosage: UNK UNK, BID
     Route: 048
     Dates: start: 2000
  5. ADVAIR [Concomitant]
     Indication: ASTHMA
     Dosage: UNK UNK, BID
     Route: 048
     Dates: start: 2000
  6. LIPITOR [Concomitant]
     Indication: HYPERLIPIDAEMIA
     Dosage: 40 MG, QD
     Route: 048
     Dates: start: 20110701
  7. FOSAMAX [Concomitant]
     Indication: OSTEOPENIA
     Dosage: 70 MG, QWK
     Route: 048
     Dates: start: 201108
  8. PRILOSEC [Concomitant]
     Indication: GASTROOESOPHAGEAL REFLUX DISEASE
     Dosage: 20 MG, QD
     Route: 048
     Dates: start: 20080601
  9. LEVOXYL [Concomitant]
     Indication: METABOLIC SYNDROME
     Dosage: 50 MUG, QD
     Route: 048
     Dates: start: 2003
  10. METHOTREXATE [Concomitant]
     Indication: RHEUMATOID ARTHRITIS
     Dosage: 2.5 MG, QWK
     Route: 048
     Dates: start: 20080721
  11. DICLOFENAC SODIUM [Concomitant]
     Indication: RHEUMATOID ARTHRITIS
     Dosage: 75 MG, BID
     Route: 048
     Dates: start: 20080530
  12. PREDNISONE [Concomitant]
     Indication: RHEUMATOID ARTHRITIS
     Dosage: 5 MG, QD
     Route: 048
     Dates: start: 200809
  13. IPRATROPIUM BROMIDE [Concomitant]
     Indication: ASTHMA
     Dosage: UNK
     Dates: start: 2000
  14. CALCIUM + VIT D [Concomitant]
     Dosage: UNK
  15. VITAMIN D [Concomitant]
     Dosage: UNK
  16. VICODIN ES [Concomitant]
     Indication: RHEUMATOID ARTHRITIS
     Dosage: 1 DF, AS NECESSARY
     Route: 048
     Dates: start: 200808
  17. AZITHROMYCIN [Concomitant]
     Indication: BRONCHITIS
     Dosage: 50 MG, QD
     Route: 048
     Dates: start: 20130425, end: 20130429

REACTIONS (1)
  - Chronic obstructive pulmonary disease [Recovered/Resolved]
